FAERS Safety Report 5261014-5 (Version None)
Quarter: 2007Q1

REPORT INFORMATION
  Report Type: 
  Country: None (occurrence: None)
  Receive Date: 20061208
  Receipt Date: 20060509
  Transmission Date: 20070707
  Serious: Yes (Other)
  Sender: FDA-Public Use
  Company Number: USA-2006-0024195

PATIENT
  Sex: Female

DRUGS (6)
  1. OXYCONTIN [Suspect]
     Indication: PAIN
     Dosage: 80 MG, BID, ORAL
     Route: 048
     Dates: start: 19970101, end: 20050101
  2. CLONAZEPAM [Concomitant]
  3. ELMIRON [Concomitant]
  4. ZELNORM [Concomitant]
  5. PHENERGAN HCL [Concomitant]
  6. OXYCODONE HCL [Concomitant]

REACTIONS (5)
  - DRUG DEPENDENCE [None]
  - DRUG WITHDRAWAL SYNDROME [None]
  - FATIGUE [None]
  - HYPERHIDROSIS [None]
  - TACHYCARDIA [None]
